FAERS Safety Report 10136581 (Version 2)
Quarter: 2014Q2

REPORT INFORMATION
  Report Type: Report from Study
  Country: TR (occurrence: TR)
  Receive Date: 20140429
  Receipt Date: 20140512
  Transmission Date: 20141212
  Serious: Yes (Hospitalization)
  Sender: FDA-Public Use
  Company Number: TR-ABBVIE-14P-161-1228729-00

PATIENT
  Age: 25 Year
  Sex: Male
  Weight: 93 kg

DRUGS (1)
  1. HUMIRA [Suspect]
     Indication: CROHN^S DISEASE
     Route: 058
     Dates: start: 20111122

REACTIONS (2)
  - Nasal septum deviation [Recovered/Resolved]
  - Influenza [Recovered/Resolved]
